FAERS Safety Report 16579309 (Version 1)
Quarter: 2019Q3

REPORT INFORMATION
  Report Type: Report from Study
  Country: BG (occurrence: BG)
  Receive Date: 20190716
  Receipt Date: 20190716
  Transmission Date: 20191004
  Serious: Yes (Hospitalization)
  Sender: FDA-Public Use
  Company Number: BG-PHARMING-PHABG2019000422

PATIENT

DRUGS (3)
  1. RUCONEST [Suspect]
     Active Substance: HUMAN C1-ESTERASE INHIBITOR
     Indication: PROPHYLAXIS
     Dosage: 4200 IU, SINGLE
     Route: 042
     Dates: start: 20190702, end: 20190702
  2. RUCONEST [Suspect]
     Active Substance: HUMAN C1-ESTERASE INHIBITOR
     Indication: HEREDITARY ANGIOEDEMA
     Dosage: 4200 IU, SINGLE
     Route: 042
     Dates: start: 20190701, end: 20190701
  3. RUCONEST [Suspect]
     Active Substance: HUMAN C1-ESTERASE INHIBITOR
     Dosage: 4200 IU, SINGLE
     Route: 042
     Dates: start: 20190703, end: 20190703

REACTIONS (6)
  - Accident [Not Recovered/Not Resolved]
  - Chest injury [Not Recovered/Not Resolved]
  - Product use in unapproved indication [Unknown]
  - Pelvic fracture [Not Recovered/Not Resolved]
  - Clavicle fracture [Not Recovered/Not Resolved]
  - Traumatic lung injury [Not Recovered/Not Resolved]

NARRATIVE: CASE EVENT DATE: 20190703
